FAERS Safety Report 15751107 (Version 1)
Quarter: 2018Q4

REPORT INFORMATION
  Report Type: Spontaneous
  Country: US (occurrence: US)
  Receive Date: 20181221
  Receipt Date: 20181221
  Transmission Date: 20190205
  Serious: No
  Sender: FDA-Public Use
  Company Number: US-THERAPEUTICSMD-2018TMD00392

PATIENT
  Sex: Female
  Weight: 48.53 kg

DRUGS (10)
  1. ALLER-TEC [Concomitant]
     Active Substance: CETIRIZINE HYDROCHLORIDE
  2. HYDROCHLOROTHIAZIDE. [Concomitant]
     Active Substance: HYDROCHLOROTHIAZIDE
  3. METFORMIN [Concomitant]
     Active Substance: METFORMIN HYDROCHLORIDE
     Dosage: 2X DAILY
  4. GABAPENTIN. [Concomitant]
     Active Substance: GABAPENTIN
  5. IMVEXXY [Suspect]
     Active Substance: ESTRADIOL
     Route: 067
  6. ASPIRIN. [Concomitant]
     Active Substance: ASPIRIN
  7. METOPROLOL. [Concomitant]
     Active Substance: METOPROLOL
  8. VITAMIN D [Concomitant]
     Active Substance: CHOLECALCIFEROL
  9. ZESTRIL [Concomitant]
     Active Substance: LISINOPRIL
  10. IMODIUM [Concomitant]
     Active Substance: LOPERAMIDE HYDROCHLORIDE
     Dosage: 2X DAILY

REACTIONS (2)
  - Product use complaint [Unknown]
  - Vulvovaginal discomfort [Unknown]
